FAERS Safety Report 20963727 (Version 14)
Quarter: 2025Q3

REPORT INFORMATION
  Report Type: Spontaneous
  Country: IN (occurrence: IN)
  Receive Date: 20220615
  Receipt Date: 20250723
  Transmission Date: 20251020
  Serious: Yes (Other)
  Sender: PFIZER
  Company Number: IN-PFIZER INC-2018443357

PATIENT
  Age: 57 Year
  Sex: Male

DRUGS (8)
  1. SUTENT [Suspect]
     Active Substance: SUNITINIB MALATE
     Indication: Metastatic renal cell carcinoma
     Route: 048
     Dates: start: 201602
  2. SUTENT [Suspect]
     Active Substance: SUNITINIB MALATE
     Dosage: 37.5 MG, 1X/DAY
     Route: 048
     Dates: start: 20180327
  3. SUTENT [Suspect]
     Active Substance: SUNITINIB MALATE
     Dates: start: 201803
  4. SUTENT [Suspect]
     Active Substance: SUNITINIB MALATE
     Dates: start: 202203
  5. SUTENT [Suspect]
     Active Substance: SUNITINIB MALATE
     Dosage: 37.5 MG, 1X/DAY
     Route: 048
  6. LANETAL [Concomitant]
     Dosage: 5 MG, 1X/DAY (1 MONTH)
  7. PANTOPRAZOLE [Concomitant]
     Active Substance: PANTOPRAZOLE
     Dosage: 1 DF, DAILY
  8. XERINA [Concomitant]

REACTIONS (26)
  - Coronary angioplasty [Unknown]
  - Blood pressure increased [Unknown]
  - Hypothyroidism [Unknown]
  - Metastatic renal cell carcinoma [Unknown]
  - Malignant neoplasm progression [Unknown]
  - Metastases to liver [Unknown]
  - Palmar-plantar erythrodysaesthesia syndrome [Unknown]
  - Malaise [Unknown]
  - Abdominal pain upper [Unknown]
  - Gastrointestinal disorder [Unknown]
  - Cardiac disorder [Unknown]
  - Renal cyst [Unknown]
  - Oedema [Unknown]
  - Constipation [Unknown]
  - Blood creatinine increased [Unknown]
  - Abdominal mass [Unknown]
  - Scar [Unknown]
  - Full blood count abnormal [Unknown]
  - Weight increased [Unknown]
  - Blood urea increased [Unknown]
  - Platelet count decreased [Unknown]
  - Drug intolerance [Unknown]
  - Haemoglobin decreased [Unknown]
  - Rash [Unknown]
  - Off label use [Unknown]
  - Product use issue [Unknown]

NARRATIVE: CASE EVENT DATE: 20211001
